FAERS Safety Report 5093876-9 (Version None)
Quarter: 2006Q3

REPORT INFORMATION
  Report Type: 
  Country: None (occurrence: None)
  Receive Date: 20060728
  Receipt Date: 20060619
  Transmission Date: 20061208
  Serious: No
  Sender: FDA-Public Use
  Company Number: 254230

PATIENT
  Age: 73 Year
  Sex: Female
  Weight: 47.6 kg

DRUGS (5)
  1. LEVEMIR [Suspect]
     Indication: DIABETES MELLITUS INSULIN-DEPENDENT
     Dosage: 12 IU, QD, SUBCUTANEOUS
     Route: 058
     Dates: start: 20060508
  2. HUMALOG [Concomitant]
  3. CREON 20                      (PROTEASE, LIPASE, AMYLASE) [Concomitant]
  4. ZOCOR [Concomitant]
  5. SYNTHROID [Concomitant]

REACTIONS (1)
  - BLOOD GLUCOSE INCREASED [None]
